FAERS Safety Report 16199043 (Version 1)
Quarter: 2019Q2

REPORT INFORMATION
  Report Type: Spontaneous
  Country: NL (occurrence: NL)
  Receive Date: 20190415
  Receipt Date: 20190415
  Transmission Date: 20190711
  Serious: Yes (Other)
  Sender: FDA-Public Use
  Company Number: NL-MYLANLABS-2019M1035026

PATIENT
  Age: 66 Year
  Sex: Female

DRUGS (3)
  1. ROPINIROLE. [Concomitant]
     Active Substance: ROPINIROLE
     Indication: PARKINSON^S DISEASE
     Dosage: UNK UNK, QD AS NECESSARY
  2. CARBIDOPA/LEVODOPA [Suspect]
     Active Substance: CARBIDOPA\LEVODOPA
     Indication: PARKINSON^S DISEASE
     Dosage: 1000 MILLIGRAM, QD (1000 MG (AS NECESSARY, DAILY))
     Route: 048
  3. BENSERAZIDE HYDROCHLORIDE W/LEVODOPA [Concomitant]
     Active Substance: BENSERAZIDE HYDROCHLORIDE\LEVODOPA
     Indication: PARKINSON^S DISEASE
     Dosage: 125 MILLIGRAM, PRN (AS NECESSARY, DAILY )

REACTIONS (2)
  - Peripheral sensory neuropathy [Recovering/Resolving]
  - Vitamin B6 deficiency [Recovering/Resolving]
